FAERS Safety Report 20526224 (Version 1)
Quarter: 2022Q1

REPORT INFORMATION
  Report Type: Spontaneous
  Country: US (occurrence: None)
  Receive Date: 20220225
  Receipt Date: 20220225
  Transmission Date: 20220424
  Serious: Yes (Other)
  Sender: FDA-Public Use
  Company Number: None

PATIENT
  Age: 53 Year
  Sex: Female

DRUGS (5)
  1. RYBELSUS [Suspect]
     Active Substance: SEMAGLUTIDE
     Indication: Diabetes mellitus
     Dosage: OTHER QUANTITY : 1 TABLET(S);?
     Route: 048
     Dates: start: 20211108, end: 20211213
  2. RYBELSUS [Suspect]
     Active Substance: SEMAGLUTIDE
     Indication: Weight decreased
  3. AMLODIPINE [Concomitant]
     Active Substance: AMLODIPINE BESYLATE
  4. ATORVASTATIN [Concomitant]
     Active Substance: ATORVASTATIN
  5. ADVIL [Concomitant]
     Active Substance: IBUPROFEN

REACTIONS (2)
  - Pancreatitis acute [None]
  - Hypophagia [None]

NARRATIVE: CASE EVENT DATE: 20211212
